FAERS Safety Report 9343002 (Version 2)
Quarter: 2014Q1

REPORT INFORMATION
  Report Type: Spontaneous
  Country: US (occurrence: US)
  Receive Date: 20130611
  Receipt Date: 20140225
  Transmission Date: 20141002
  Serious: Yes (Hospitalization)
  Sender: FDA-Public Use
  Company Number: US-B.I. PHARMACEUTICALS,INC./RIDGEFIELD-2013-BI-16110BP

PATIENT
  Sex: Female
  Weight: 109.77 kg

DRUGS (11)
  1. PRADAXA [Suspect]
     Indication: CEREBROVASCULAR ACCIDENT PROPHYLAXIS
     Route: 065
     Dates: start: 20110105, end: 20110823
  2. PRADAXA [Suspect]
     Indication: THROMBOSIS PROPHYLAXIS
  3. PROPRANOLOL [Concomitant]
     Dosage: 40 MG
     Route: 065
  4. K-DUR [Concomitant]
     Dosage: 20 MEQ
     Route: 065
  5. ATIVAN [Concomitant]
     Dosage: 4 MG
     Route: 065
  6. ALBUTEROL INHALER [Concomitant]
     Route: 065
  7. HUMALOG INSULIN [Concomitant]
     Dosage: 18 U
     Route: 065
  8. LISPRO INSULIN [Concomitant]
     Route: 065
  9. GLIPIZIDE [Concomitant]
     Dosage: 5 MG
     Route: 065
  10. LASIX [Concomitant]
     Dosage: 40 MG
     Route: 065
  11. LEXAPRO [Concomitant]
     Dosage: 20 MG
     Route: 065

REACTIONS (2)
  - Gastrointestinal haemorrhage [Unknown]
  - Anaemia [Unknown]
